FAERS Safety Report 9322130 (Version 1)
Quarter: 2013Q2

REPORT INFORMATION
  Report Type: Report from Study
  Country: TW (occurrence: TW)
  Receive Date: 20130531
  Receipt Date: 20130531
  Transmission Date: 20140414
  Serious: Yes (Other)
  Sender: FDA-Public Use
  Company Number: TW-PFIZER INC-2013160961

PATIENT
  Age: 59 Year
  Sex: Male

DRUGS (2)
  1. TEMSIROLIMUS [Suspect]
     Indication: RENAL CELL CARCINOMA
     Dosage: 25 MG CYCLIC (AS A 30- TO 60-MINUTE INFUSION, WHICH WAS REPEATED EVERY WEEK)
     Route: 041
  2. BEVACIZUMAB [Suspect]
     Indication: RENAL CELL CARCINOMA
     Dosage: 10 MG/KG, CYCLIC (60-MINUTE INFUSION EVERY 2 WEEKS)
     Route: 041

REACTIONS (1)
  - Tuberculosis [Unknown]
